FAERS Safety Report 16825880 (Version 1)
Quarter: 2019Q3

REPORT INFORMATION
  Report Type: Spontaneous
  Country: US (occurrence: US)
  Receive Date: 20190919
  Receipt Date: 20190919
  Transmission Date: 20191005
  Serious: Yes (Other)
  Sender: FDA-Public Use
  Company Number: US-DSJP-DSU-2017-146203

PATIENT

DRUGS (1)
  1. BENICAR HCT [Suspect]
     Active Substance: HYDROCHLOROTHIAZIDE\OLMESARTAN MEDOXOMIL
     Indication: PRODUCT USED FOR UNKNOWN INDICATION
     Dosage: 40-25 MG, QD
     Route: 048
     Dates: start: 20061121

REACTIONS (6)
  - Large intestine polyp [Unknown]
  - Oedema [Unknown]
  - Sprue-like enteropathy [Recovering/Resolving]
  - Dyspepsia [Unknown]
  - Acute kidney injury [Unknown]
  - Diverticulum [Unknown]

NARRATIVE: CASE EVENT DATE: 20131201
